FAERS Safety Report 9360863 (Version 1)
Quarter: 2013Q2

REPORT INFORMATION
  Report Type: Spontaneous
  Country: US (occurrence: US)
  Receive Date: 20130621
  Receipt Date: 20130621
  Transmission Date: 20140414
  Serious: Yes (Death, Hospitalization)
  Sender: FDA-Public Use
  Company Number: US-BANPHARM-20131412

PATIENT
  Age: 28 Year
  Sex: Female
  Weight: 70 kg

DRUGS (5)
  1. IBUPROFEN UNKNOWN PRODUCT [Suspect]
     Indication: LIGAMENT SPRAIN
     Dosage: 800 MG, TID, DAYS 1 TO 36,
     Route: 065
  2. VALDECOXIB [Suspect]
     Dosage: 10 MG, QD, DAYS 76 TO 139,
     Route: 065
  3. METAXALONE [Suspect]
     Dosage: 800 MG, TID,
     Route: 065
  4. METHOCARBAMOL [Suspect]
     Dosage: 400 MG, QID,
     Route: 065
  5. CYCLOBENZAPRINE [Concomitant]
     Dosage: 10 MG, EVERY NIGHT,
     Route: 065

REACTIONS (10)
  - Hypertension [Fatal]
  - Gastritis [Fatal]
  - Renal failure [Fatal]
  - Cerebral haemorrhage [Fatal]
  - Respiratory failure [Fatal]
  - Cardiomyopathy [Fatal]
  - Menorrhagia [Fatal]
  - Coma [Fatal]
  - Medication error [Fatal]
  - Diabetes mellitus [Fatal]
